FAERS Safety Report 15629924 (Version 1)
Quarter: 2018Q4

REPORT INFORMATION
  Report Type: Spontaneous
  Country: US (occurrence: US)
  Receive Date: 20181117
  Receipt Date: 20181117
  Transmission Date: 20190205
  Serious: Yes (Hospitalization, Other)
  Sender: FDA-Public Use
  Company Number: US-MYLANLABS-2018M1086840

PATIENT
  Age: 19 Year
  Sex: Female
  Weight: 69 kg

DRUGS (1)
  1. ACETYLCYSTEINE. [Suspect]
     Active Substance: ACETYLCYSTEINE
     Indication: OVERDOSE
     Route: 042

REACTIONS (1)
  - Drug ineffective [Unknown]
